FAERS Safety Report 6758164-0 (Version None)
Quarter: 2010Q2

REPORT INFORMATION
  Report Type: 
  Country: None (occurrence: None)
  Receive Date: 20100604
  Receipt Date: 20100521
  Transmission Date: 20101027
  Serious: Yes (Other)
  Sender: FDA-Public Use
  Company Number: MT-1181984

PATIENT
  Age: 46 Year
  Sex: Male

DRUGS (1)
  1. TOBREX [Suspect]
     Indication: FOREIGN BODY IN EYE
     Dosage: OPHTHALMIC
     Route: 047

REACTIONS (2)
  - DYSPNOEA [None]
  - EYE SWELLING [None]
